FAERS Safety Report 4437344-3 (Version None)
Quarter: 2004Q3

REPORT INFORMATION
  Report Type: 
  Country: None (occurrence: None)
  Receive Date: 20040726
  Receipt Date: 20040423
  Transmission Date: 20050211
  Serious: No
  Sender: FDA-Public Use
  Company Number: USA040363268

PATIENT
  Age: 71 Year
  Sex: Female

DRUGS (9)
  1. FORTEO [Suspect]
     Indication: OSTEOPOROSIS
     Dates: start: 20040319
  2. ANTIBIOTIC [Concomitant]
  3. XANAX [Concomitant]
  4. EFFEXOR [Concomitant]
  5. ELAVIL [Concomitant]
  6. AMBIEN [Concomitant]
  7. VICODIN [Concomitant]
  8. MIRALAX [Concomitant]
  9. LIPITOR [Concomitant]

REACTIONS (4)
  - CONSTIPATION [None]
  - PAIN EXACERBATED [None]
  - PELVIC PAIN [None]
  - URTICARIA [None]
